FAERS Safety Report 21588252 (Version 2)
Quarter: 2022Q4

REPORT INFORMATION
  Report Type: Report from Study
  Country: US (occurrence: US)
  Receive Date: 20221114
  Receipt Date: 20221213
  Transmission Date: 20230112
  Serious: No
  Sender: FDA-Public Use
  Company Number: US-ACADIA PHARMACEUTICALS INC.-ACA-2022-PIM-003652

PATIENT
  Age: 79 Year
  Sex: Female

DRUGS (2)
  1. NUPLAZID [Suspect]
     Active Substance: PIMAVANSERIN TARTRATE
     Indication: Parkinson^s disease
     Dosage: 1 TO 2 TABLETS BY MOUTH ONE TIME PER DAY
     Route: 048
     Dates: start: 20220701
  2. NUPLAZID [Suspect]
     Active Substance: PIMAVANSERIN TARTRATE
     Dosage: 1 TO 2 TABLETS BY MOUTH ONE TIME PER DAY
     Route: 048
     Dates: start: 202208

REACTIONS (6)
  - Oedema [Unknown]
  - Injury [Unknown]
  - Incorrect dose administered [Unknown]
  - Peripheral swelling [Unknown]
  - Agitation [Unknown]
  - Fall [Unknown]

NARRATIVE: CASE EVENT DATE: 20220701
